FAERS Safety Report 9496966 (Version 2)
Quarter: 2014Q1

REPORT INFORMATION
  Report Type: Spontaneous
  Country: SE (occurrence: SE)
  Receive Date: 20130904
  Receipt Date: 20140117
  Transmission Date: 20141002
  Serious: Yes (Death, Other)
  Sender: FDA-Public Use
  Company Number: SE-JNJFOC-20130816469

PATIENT
  Sex: Male

DRUGS (2)
  1. REMICADE [Suspect]
     Indication: INFLAMMATORY BOWEL DISEASE
     Dosage: SEVERAL YEARS AGO
     Route: 042
     Dates: start: 2005, end: 2013
  2. AZATHIOPRIN [Suspect]
     Indication: INFLAMMATORY BOWEL DISEASE
     Dosage: SEVERAL YEARS AGO
     Route: 065
     Dates: start: 2001, end: 2013

REACTIONS (3)
  - Lymphoma [Fatal]
  - Epithelioid sarcoma [Fatal]
  - Peripheral nerve sheath tumour malignant [Fatal]
